FAERS Safety Report 15295836 (Version 9)
Quarter: 2021Q3

REPORT INFORMATION
  Report Type: Report from Study
  Country: US (occurrence: US)
  Receive Date: 20180820
  Receipt Date: 20210806
  Transmission Date: 20211014
  Serious: Yes (Other)
  Sender: FDA-Public Use
  Company Number: US-ROCHE-2170130

PATIENT
  Age: 33 Year
  Sex: Female
  Weight: 60.5 kg

DRUGS (1)
  1. ATEZOLIZUMAB. [Suspect]
     Active Substance: ATEZOLIZUMAB
     Indication: ALVEOLAR SOFT PART SARCOMA
     Dosage: OVER 60 MINUTES ON DAY 1?SHE RECEIVED SUBSEQUENT DOSES OF ATEZOLIZUMAB 1200 MG ON 27/OCT/2017, 17/NO
     Route: 042
     Dates: start: 20171006

REACTIONS (2)
  - Pain in extremity [Unknown]
  - Fracture [Unknown]

NARRATIVE: CASE EVENT DATE: 20180502
